FAERS Safety Report 7219907-5 (Version None)
Quarter: 2011Q1

REPORT INFORMATION
  Report Type: 
  Country: None (occurrence: None)
  Receive Date: 20110111
  Receipt Date: 20110106
  Transmission Date: 20110831
  Serious: Yes (Death, Other)
  Sender: FDA-Public Use
  Company Number: PHHY2009JP12423

PATIENT
  Sex: Male

DRUGS (14)
  1. ZOLEDRONATE [Suspect]
     Indication: METASTASES TO BONE
     Dosage: 4 MG, QMO
     Route: 042
     Dates: start: 20071121, end: 20090715
  2. DECADRON [Concomitant]
     Dosage: 1 MG
     Route: 048
  3. OXYCONTIN [Concomitant]
     Dosage: 5 MG, UNK
     Route: 048
     Dates: start: 20081121
  4. ESTRACYT [Concomitant]
     Dosage: 3 DF, UNK
     Route: 048
     Dates: start: 20071121, end: 20080731
  5. FERRUM [Concomitant]
     Dosage: 305 MG, UNK
     Route: 048
     Dates: start: 20080905
  6. PURSENNID [Concomitant]
     Dosage: 24 MG, UNK
     Route: 048
     Dates: start: 20081114
  7. DECADRON [Concomitant]
     Dosage: 2 MG
     Route: 048
     Dates: start: 20080801
  8. GASTER D [Concomitant]
     Dosage: 40 MG, UNK
     Route: 048
     Dates: start: 20081119, end: 20090329
  9. DECADRON [Concomitant]
     Dosage: 1.5 MG
     Route: 048
  10. ASPIRIN [Concomitant]
     Dosage: 100 MG
     Route: 048
     Dates: start: 20071121, end: 20080731
  11. LEUPLIN [Concomitant]
     Dosage: 11.25MG
     Route: 042
     Dates: start: 20071121, end: 20081121
  12. MAGLAX [Concomitant]
     Dosage: 1500 MG, UNK
     Route: 048
     Dates: start: 20081114
  13. OXYCONTIN [Concomitant]
     Dosage: 10 MG, UNK
     Dates: end: 20090322
  14. LASIX [Concomitant]
     Dosage: 20 MG, UNK
     Route: 048
     Dates: start: 20081128, end: 20081203

REACTIONS (4)
  - DEATH [None]
  - RENAL IMPAIRMENT [None]
  - HYPOCALCAEMIA [None]
  - DRUG INEFFECTIVE [None]
